FAERS Safety Report 4879510-9 (Version None)
Quarter: 2006Q1

REPORT INFORMATION
  Report Type: 
  Country: None (occurrence: None)
  Receive Date: 20060113
  Receipt Date: 20060106
  Transmission Date: 20060701
  Serious: Yes (Other)
  Sender: FDA-Public Use
  Company Number: US-JNJFOC-20060101367

PATIENT
  Sex: Male
  Weight: 115.67 kg

DRUGS (10)
  1. REMICADE [Suspect]
     Indication: RHEUMATOID ARTHRITIS
     Route: 042
  2. NEBULIZER [Concomitant]
  3. METHOTREXATE [Concomitant]
  4. FOSAMAX [Concomitant]
  5. SPIRIVA [Concomitant]
  6. MOBIC [Concomitant]
  7. CHROMAGEN FA [Concomitant]
  8. CHROMAGEN FA [Concomitant]
  9. CHROMAGEN FA [Concomitant]
  10. CHROMAGEN FA [Concomitant]

REACTIONS (1)
  - PULMONARY TUBERCULOSIS [None]
